FAERS Safety Report 8508840-4 (Version None)
Quarter: 2012Q3

REPORT INFORMATION
  Report Type: 
  Country: None (occurrence: None)
  Receive Date: 20120713
  Receipt Date: 20120711
  Transmission Date: 20120928
  Serious: No
  Sender: FDA-Public Use
  Company Number: US-PFIZER INC-2012122990

PATIENT
  Sex: Female
  Weight: 113 kg

DRUGS (6)
  1. GEODON [Suspect]
     Indication: SCHIZOPHRENIA
     Dosage: 40 MG, UNK
  2. GEODON [Suspect]
     Dosage: 80 MG, UNK
  3. CALCIUM [Concomitant]
     Dosage: UNK
  4. ZIPRASIDONE HCL [Suspect]
     Dosage: 40 MG, 1X/DAY
     Route: 048
     Dates: start: 20120101
  5. ZIPRASIDONE HCL [Suspect]
     Indication: SCHIZOPHRENIA
     Dosage: 40 MG, 4X/DAY
     Route: 048
     Dates: start: 20120301, end: 20120101
  6. GEODON [Suspect]
     Dosage: 60 MG, 1X/DAY IN MORNING
     Route: 048
     Dates: start: 20100101

REACTIONS (3)
  - DRUG INEFFECTIVE [None]
  - DRUG EFFECT DECREASED [None]
  - FEELING ABNORMAL [None]
